FAERS Safety Report 7752035-9 (Version None)
Quarter: 2011Q3

REPORT INFORMATION
  Report Type: 
  Country: None (occurrence: None)
  Receive Date: 20110915
  Receipt Date: 20100423
  Transmission Date: 20111222
  Serious: No
  Sender: FDA-Public Use
  Company Number: US-BAYER-201021084NA

PATIENT
  Age: 48 Year
  Sex: Female

DRUGS (1)
  1. MIRENA [Suspect]
     Indication: MENORRHAGIA
     Dosage: UNK
     Dates: start: 20051101

REACTIONS (4)
  - FATIGUE [None]
  - VAGINAL HAEMORRHAGE [None]
  - PREMENSTRUAL SYNDROME [None]
  - BACK PAIN [None]
